FAERS Safety Report 25865050 (Version 1)
Quarter: 2025Q3

REPORT INFORMATION
  Report Type: Spontaneous
  Country: EU (occurrence: EU)
  Receive Date: 20250930
  Receipt Date: 20250930
  Transmission Date: 20251020
  Serious: Yes (Hospitalization)
  Sender: MYLAN
  Company Number: EU-MYLANLABS-2025M1083002

PATIENT
  Age: 79 Year
  Sex: Female

DRUGS (44)
  1. VENLAFAXINE [Suspect]
     Active Substance: VENLAFAXINE HYDROCHLORIDE
     Indication: Antidepressant therapy
  2. VENLAFAXINE [Suspect]
     Active Substance: VENLAFAXINE HYDROCHLORIDE
     Route: 065
  3. VENLAFAXINE [Suspect]
     Active Substance: VENLAFAXINE HYDROCHLORIDE
     Route: 065
  4. VENLAFAXINE [Suspect]
     Active Substance: VENLAFAXINE HYDROCHLORIDE
  5. BENSERAZIDE HYDROCHLORIDE\LEVODOPA [Concomitant]
     Active Substance: BENSERAZIDE HYDROCHLORIDE\LEVODOPA
     Indication: Dementia
     Dosage: UNK UNK, QD (IN THE MORNING)
  6. BENSERAZIDE HYDROCHLORIDE\LEVODOPA [Concomitant]
     Active Substance: BENSERAZIDE HYDROCHLORIDE\LEVODOPA
     Dosage: UNK UNK, QD (IN THE MORNING)
     Route: 065
  7. BENSERAZIDE HYDROCHLORIDE\LEVODOPA [Concomitant]
     Active Substance: BENSERAZIDE HYDROCHLORIDE\LEVODOPA
     Dosage: UNK UNK, QD (IN THE MORNING)
     Route: 065
  8. BENSERAZIDE HYDROCHLORIDE\LEVODOPA [Concomitant]
     Active Substance: BENSERAZIDE HYDROCHLORIDE\LEVODOPA
     Dosage: UNK UNK, QD (IN THE MORNING)
  9. BENSERAZIDE HYDROCHLORIDE\LEVODOPA [Concomitant]
     Active Substance: BENSERAZIDE HYDROCHLORIDE\LEVODOPA
     Indication: Dementia
     Dosage: UNK UNK, QD (IN THE AFTERNOON)
  10. BENSERAZIDE HYDROCHLORIDE\LEVODOPA [Concomitant]
     Active Substance: BENSERAZIDE HYDROCHLORIDE\LEVODOPA
     Dosage: UNK UNK, QD (IN THE AFTERNOON)
     Route: 065
  11. BENSERAZIDE HYDROCHLORIDE\LEVODOPA [Concomitant]
     Active Substance: BENSERAZIDE HYDROCHLORIDE\LEVODOPA
     Dosage: UNK UNK, QD (IN THE AFTERNOON)
     Route: 065
  12. BENSERAZIDE HYDROCHLORIDE\LEVODOPA [Concomitant]
     Active Substance: BENSERAZIDE HYDROCHLORIDE\LEVODOPA
     Dosage: UNK UNK, QD (IN THE AFTERNOON)
  13. TERALITHE [Concomitant]
     Active Substance: LITHIUM CARBONATE
     Indication: Bipolar I disorder
     Dosage: 250 MILLIGRAM, BID (IMMEDIATE RELEASE)
  14. TERALITHE [Concomitant]
     Active Substance: LITHIUM CARBONATE
     Dosage: 250 MILLIGRAM, BID (IMMEDIATE RELEASE)
     Route: 065
  15. TERALITHE [Concomitant]
     Active Substance: LITHIUM CARBONATE
     Dosage: 250 MILLIGRAM, BID (IMMEDIATE RELEASE)
     Route: 065
  16. TERALITHE [Concomitant]
     Active Substance: LITHIUM CARBONATE
     Dosage: 250 MILLIGRAM, BID (IMMEDIATE RELEASE)
  17. OXAZEPAM [Concomitant]
     Active Substance: OXAZEPAM
     Indication: Anxiolytic therapy
  18. OXAZEPAM [Concomitant]
     Active Substance: OXAZEPAM
     Route: 065
  19. OXAZEPAM [Concomitant]
     Active Substance: OXAZEPAM
     Route: 065
  20. OXAZEPAM [Concomitant]
     Active Substance: OXAZEPAM
  21. RIVASTIGMINE [Concomitant]
     Active Substance: RIVASTIGMINE
     Indication: Dementia
     Dosage: 9.5 MILLIGRAM, QD
  22. RIVASTIGMINE [Concomitant]
     Active Substance: RIVASTIGMINE
     Dosage: 9.5 MILLIGRAM, QD
     Route: 065
  23. RIVASTIGMINE [Concomitant]
     Active Substance: RIVASTIGMINE
     Dosage: 9.5 MILLIGRAM, QD
     Route: 065
  24. RIVASTIGMINE [Concomitant]
     Active Substance: RIVASTIGMINE
     Dosage: 9.5 MILLIGRAM, QD
  25. ASPIRIN [Concomitant]
     Active Substance: ASPIRIN
     Indication: Hypertension
  26. ASPIRIN [Concomitant]
     Active Substance: ASPIRIN
     Route: 065
  27. ASPIRIN [Concomitant]
     Active Substance: ASPIRIN
     Route: 065
  28. ASPIRIN [Concomitant]
     Active Substance: ASPIRIN
  29. LERCANIDIPINE [Concomitant]
     Active Substance: LERCANIDIPINE
     Indication: Hypertension
  30. LERCANIDIPINE [Concomitant]
     Active Substance: LERCANIDIPINE
     Route: 065
  31. LERCANIDIPINE [Concomitant]
     Active Substance: LERCANIDIPINE
     Route: 065
  32. LERCANIDIPINE [Concomitant]
     Active Substance: LERCANIDIPINE
  33. NEBIVOLOL [Concomitant]
     Active Substance: NEBIVOLOL
     Indication: Hypertension
  34. NEBIVOLOL [Concomitant]
     Active Substance: NEBIVOLOL
     Route: 065
  35. NEBIVOLOL [Concomitant]
     Active Substance: NEBIVOLOL
     Route: 065
  36. NEBIVOLOL [Concomitant]
     Active Substance: NEBIVOLOL
  37. LORAZEPAM [Concomitant]
     Active Substance: LORAZEPAM
     Indication: Catatonia
     Dosage: 3 MILLIGRAM, QD
  38. LORAZEPAM [Concomitant]
     Active Substance: LORAZEPAM
     Dosage: 3 MILLIGRAM, QD
  39. LORAZEPAM [Concomitant]
     Active Substance: LORAZEPAM
     Dosage: 3 MILLIGRAM, QD
     Route: 065
  40. LORAZEPAM [Concomitant]
     Active Substance: LORAZEPAM
     Dosage: 3 MILLIGRAM, QD
     Route: 065
  41. LORAZEPAM [Concomitant]
     Active Substance: LORAZEPAM
     Dosage: 5 MILLIGRAM, QD
  42. LORAZEPAM [Concomitant]
     Active Substance: LORAZEPAM
     Dosage: 5 MILLIGRAM, QD
  43. LORAZEPAM [Concomitant]
     Active Substance: LORAZEPAM
     Dosage: 5 MILLIGRAM, QD
     Route: 065
  44. LORAZEPAM [Concomitant]
     Active Substance: LORAZEPAM
     Dosage: 5 MILLIGRAM, QD
     Route: 065

REACTIONS (6)
  - Affect lability [Unknown]
  - Tachyphrenia [Unknown]
  - Middle insomnia [Unknown]
  - Behaviour disorder [Unknown]
  - Anxiety [Unknown]
  - Hallucination, visual [Unknown]
